FAERS Safety Report 6734284-1 (Version None)
Quarter: 2010Q2

REPORT INFORMATION
  Report Type: 
  Country: None (occurrence: None)
  Receive Date: 20100520
  Receipt Date: 20100519
  Transmission Date: 20101027
  Serious: Yes (Other)
  Sender: FDA-Public Use
  Company Number: JP-ROXANE LABORATORIES, INC.-2010-RO-00603RO

PATIENT
  Age: 3 Year
  Sex: Female
  Weight: 16 kg

DRUGS (3)
  1. MERCAPTOPURINE [Suspect]
     Indication: CROHN'S DISEASE
     Dosage: 50 MG
  2. MESALAZINE [Suspect]
     Indication: CROHN'S DISEASE
     Route: 048
  3. PREDNISOLONE [Suspect]
     Indication: CROHN'S DISEASE

REACTIONS (1)
  - PANCREATITIS [None]
